FAERS Safety Report 8177001-3 (Version None)
Quarter: 2012Q1

REPORT INFORMATION
  Report Type: 
  Country: None (occurrence: None)
  Receive Date: 20120301
  Receipt Date: 20120221
  Transmission Date: 20120608
  Serious: Yes (Other)
  Sender: FDA-Public Use
  Company Number: US-BAYER-2011-114332

PATIENT
  Age: 39 Year
  Sex: Female
  Weight: 54.422 kg

DRUGS (1)
  1. YAZ [Suspect]
     Dosage: UNK
     Dates: start: 20090401, end: 20091201

REACTIONS (4)
  - INJURY [None]
  - EMOTIONAL DISTRESS [None]
  - PAIN [None]
  - THROMBOSIS [None]
